FAERS Safety Report 6031394-1 (Version None)
Quarter: 2008Q4

REPORT INFORMATION
  Report Type: 
  Country: None (occurrence: None)
  Receive Date: 20081222
  Receipt Date: 20080905
  Transmission Date: 20090506
  Serious: No
  Sender: FDA-Public Use
  Company Number: US-WYE-H05936408

PATIENT
  Age: 48 Year
  Sex: Female

DRUGS (1)
  1. PRISTIQ [Suspect]
     Indication: MAJOR DEPRESSION
     Dosage: 50 MG 1X PER 1 DAY
     Dates: start: 20080801

REACTIONS (1)
  - LIBIDO DECREASED [None]
